FAERS Safety Report 6063634-7 (Version None)
Quarter: 2009Q1

REPORT INFORMATION
  Report Type: 
  Country: None (occurrence: None)
  Receive Date: 20090129
  Receipt Date: 20090116
  Transmission Date: 20090719
  Serious: No
  Sender: FDA-Public Use
  Company Number: US025325

PATIENT
  Age: 10 Month
  Sex: Female

DRUGS (1)
  1. ACTIQ [Suspect]
     Dosage: ONCE BUCCAL
     Route: 002
     Dates: start: 20080923, end: 20080923

REACTIONS (1)
  - ACCIDENTAL DRUG INTAKE BY CHILD [None]
